FAERS Safety Report 9753181 (Version 1)
Quarter: 2013Q4

REPORT INFORMATION
  Report Type: Spontaneous
  Country: US (occurrence: US)
  Receive Date: 20131213
  Receipt Date: 20131213
  Transmission Date: 20140711
  Serious: No
  Sender: FDA-Public Use
  Company Number: US-GILEAD-2010-0026913

PATIENT
  Age: 71 Year
  Sex: Female
  Weight: 92.08 kg

DRUGS (12)
  1. LETAIRIS [Suspect]
     Indication: PULMONARY ARTERIAL HYPERTENSION
     Route: 048
     Dates: start: 20100113
  2. LETAIRIS [Suspect]
     Route: 048
     Dates: start: 20090608, end: 20100113
  3. FUROSEMIDE [Concomitant]
  4. ENALAPRIL [Concomitant]
  5. GLYBURIDE [Concomitant]
  6. PENTOXIFYLLINE [Concomitant]
  7. SIMVASTATIN [Concomitant]
  8. CITRACAL [Concomitant]
  9. MVI [Concomitant]
  10. BABY ASPIRIN [Concomitant]
  11. LEVOTHYROXINE [Concomitant]
  12. ACTOS [Concomitant]

REACTIONS (1)
  - Oedema peripheral [Not Recovered/Not Resolved]
